FAERS Safety Report 25470318 (Version 1)
Quarter: 2025Q2

REPORT INFORMATION
  Report Type: Report from Study
  Country: CA (occurrence: CA)
  Receive Date: 20250623
  Receipt Date: 20250623
  Transmission Date: 20250717
  Serious: Yes (Other)
  Sender: UCB
  Company Number: CA-UCBSA-2024039690

PATIENT
  Sex: Female

DRUGS (11)
  1. BIMEKIZUMAB [Suspect]
     Active Substance: BIMEKIZUMAB
     Indication: Psoriasis
     Dosage: 160 MILLIGRAM, EV 4 WEEKS
     Route: 058
     Dates: start: 20240404, end: 2024
  2. BIMEKIZUMAB [Suspect]
     Active Substance: BIMEKIZUMAB
     Indication: Psoriatic arthropathy
     Dosage: 160 MILLIGRAM, EV 8 WEEKS
     Route: 058
     Dates: start: 2024, end: 2024
  3. BIMEKIZUMAB [Suspect]
     Active Substance: BIMEKIZUMAB
     Dosage: 160 MILLIGRAM, EV 4 WEEKS
     Route: 058
     Dates: start: 2024
  4. BIMEKIZUMAB [Suspect]
     Active Substance: BIMEKIZUMAB
     Dosage: 320 MILLIGRAM, EV 4 WEEKS
     Route: 058
     Dates: start: 20250618
  5. SPIRONOLACTONE [Concomitant]
     Active Substance: SPIRONOLACTONE
     Indication: Product used for unknown indication
     Dosage: 25 MILLIGRAM, 2X/DAY (BID)
     Route: 048
  6. ATENOLOL [Concomitant]
     Active Substance: ATENOLOL
     Indication: Product used for unknown indication
     Dosage: 100 MILLIGRAM, 2X/DAY (BID)
     Route: 048
  7. FENOFIBRATE [Concomitant]
     Active Substance: FENOFIBRATE
     Indication: Product used for unknown indication
     Dosage: 67 MILLIGRAM, ONCE DAILY (QD)
     Route: 048
  8. METFORMIN [Concomitant]
     Active Substance: METFORMIN HYDROCHLORIDE
     Indication: Product used for unknown indication
     Dosage: 500 MILLIGRAM, 2X/DAY (BID)
     Route: 048
  9. RAMIPRIL [Concomitant]
     Active Substance: RAMIPRIL
     Indication: Product used for unknown indication
     Dosage: 5 MILLIGRAM, ONCE DAILY (QD)
     Route: 048
  10. DILTIAZEM [Concomitant]
     Active Substance: DILTIAZEM
     Indication: Product used for unknown indication
     Dosage: UNK, ONCE DAILY (QD)
     Route: 048
  11. OZEMPIC [Concomitant]
     Active Substance: SEMAGLUTIDE
     Indication: Product used for unknown indication

REACTIONS (7)
  - Psoriatic arthropathy [Unknown]
  - Inappropriate schedule of product administration [Unknown]
  - Product dose omission in error [Unknown]
  - Drug ineffective [Unknown]
  - Product dose omission issue [Unknown]
  - Product distribution issue [Unknown]
  - Off label use [Unknown]

NARRATIVE: CASE EVENT DATE: 20240101
